FAERS Safety Report 8403512-9 (Version None)
Quarter: 2012Q2

REPORT INFORMATION
  Report Type: 
  Country: None (occurrence: None)
  Receive Date: 20120601
  Receipt Date: 20120524
  Transmission Date: 20120825
  Serious: Yes (Hospitalization)
  Sender: FDA-Public Use
  Company Number: US-JNJFOC-20110703963

PATIENT
  Sex: Female
  Weight: 51.6 kg

DRUGS (2)
  1. INFLIXIMAB, RECOMBINANT [Suspect]
     Indication: COLITIS ULCERATIVE
     Route: 042
     Dates: start: 20091102
  2. PREDNISONE TAB [Concomitant]

REACTIONS (2)
  - COLITIS ULCERATIVE [None]
  - ANAEMIA [None]
